FAERS Safety Report 7094037-4 (Version None)
Quarter: 2010Q4

REPORT INFORMATION
  Report Type: 
  Country: None (occurrence: None)
  Receive Date: 20101101
  Receipt Date: 20101017
  Transmission Date: 20110411
  Serious: Yes (Congenital Anomaly)
  Sender: FDA-Public Use
  Company Number: GB-DEXPHARM-20101614

PATIENT

DRUGS (14)
  1. CHLORHEXIDINE GLUCONATE [Suspect]
     Dosage: TRANSPLACENTAL
     Route: 064
     Dates: start: 20090309, end: 20090420
  2. ALENDRONIC ACID [Suspect]
     Indication: SYSTEMIC LUPUS ERYTHEMATOSUS
     Dosage: DOSE: 70 MG MILLIGRAM(S) SEP. DOSAGES / INTERVAL: 1 IN 1 DAY TRANSPLACENTAL
     Route: 064
  3. AZATHIOPRINE [Suspect]
     Indication: SYSTEMIC LUPUS ERYTHEMATOSUS
     Dosage: DOSE: 50 MG MILLIGRAM(S) SEP. DOSAGES / INTERVAL: 1 IN 1 DAY TRANSPLACENTAL
     Route: 064
     Dates: start: 20090309
  4. HYDROXYCHLOROQUINE SULFATE [Suspect]
     Indication: SYSTEMIC LUPUS ERYTHEMATOSUS
     Dosage: DOSE: 200 MG MILLIGRAM(S) SEP. DOSAGES / INTERVAL: 1 IN 1 DAY TRANSPLACENTAL
     Route: 064
     Dates: start: 20090318
  5. LACTULOSE [Suspect]
     Dosage: TRANSPLACENTAL
     Route: 064
     Dates: start: 20090309, end: 20090420
  6. METHYLPREDNISOLONE [Suspect]
     Dosage: TRANSPLACENTAL
     Route: 064
  7. MUPIROCIN [Suspect]
     Dosage: TRANSPLACENTAL
     Route: 064
     Dates: start: 20090309, end: 20090420
  8. PARACETAMOL [Suspect]
     Dosage: TRANSPLACENTAL
     Route: 064
     Dates: start: 20090309, end: 20090420
  9. PREDNISOLONE [Suspect]
     Dosage: TRANSPLACENTAL
     Route: 064
     Dates: start: 20090309
  10. SENNA [Suspect]
     Dosage: TRANSPLACENTAL
     Route: 064
     Dates: start: 20090309, end: 20090420
  11. SIMPLE LINCTUS [Suspect]
     Dosage: TRANSPLACENTAL
     Route: 064
     Dates: start: 20090309, end: 20090420
  12. ADCAL 3 [Suspect]
  13. ASPIRIN [Concomitant]
  14. FOLIC ACID [Concomitant]

REACTIONS (4)
  - ABORTION INDUCED [None]
  - CLEFT LIP AND PALATE [None]
  - MATERNAL CONDITION AFFECTING FOETUS [None]
  - MATERNAL DRUGS AFFECTING FOETUS [None]
